FAERS Safety Report 7595508-4 (Version None)
Quarter: 2011Q3

REPORT INFORMATION
  Report Type: 
  Country: None (occurrence: None)
  Receive Date: 20110707
  Receipt Date: 20110624
  Transmission Date: 20111222
  Serious: Yes (Hospitalization)
  Sender: FDA-Public Use
  Company Number: US-JNJFOC-20110611765

PATIENT
  Sex: Female
  Weight: 53.07 kg

DRUGS (8)
  1. LIPITOR [Concomitant]
     Indication: BLOOD CHOLESTEROL ABNORMAL
     Route: 048
  2. CALCIUM CARBONATE [Concomitant]
     Indication: BLOOD CALCIUM DECREASED
     Route: 048
  3. ARAVA [Concomitant]
     Indication: ARTHRITIS
     Route: 048
  4. HYDROXYCHLOROQUINE SULFATE [Concomitant]
     Indication: ARTHRITIS
  5. OMEPRAZOLE [Concomitant]
     Indication: GASTRIC DISORDER
     Route: 048
  6. FUROSEMIDE [Concomitant]
     Indication: CARDIAC DISORDER
     Route: 048
  7. REMICADE [Suspect]
     Indication: RHEUMATOID ARTHRITIS
     Route: 042
     Dates: start: 20100101
  8. DIGOXIN [Concomitant]
     Indication: CARDIAC DISORDER
     Route: 048

REACTIONS (5)
  - ANAEMIA [None]
  - COUGH [None]
  - SKIN CANCER [None]
  - PULMONARY MASS [None]
  - HYPERTENSION [None]
